FAERS Safety Report 23701512 (Version 1)
Quarter: 2024Q2

REPORT INFORMATION
  Report Type: Spontaneous
  Country: US (occurrence: None)
  Receive Date: 20240402
  Receipt Date: 20240402
  Transmission Date: 20240716
  Serious: No
  Sender: FDA-Public Use
  Company Number: None

PATIENT
  Age: 68 Year
  Sex: Male
  Weight: 85.5 kg

DRUGS (2)
  1. REMICADE [Suspect]
     Active Substance: INFLIXIMAB
     Indication: Rheumatoid arthritis
     Dosage: OTHER FREQUENCY : EVERY 8 WEEKS;?
     Route: 041
     Dates: start: 20240319, end: 20240402
  2. REMICADE [Concomitant]
     Active Substance: INFLIXIMAB
     Dates: start: 20240319, end: 20240402

REACTIONS (4)
  - Dyspnoea [None]
  - Pruritus [None]
  - Urticaria [None]
  - Chest discomfort [None]

NARRATIVE: CASE EVENT DATE: 20240402
